FAERS Safety Report 5873363-8 (Version None)
Quarter: 2008Q3

REPORT INFORMATION
  Report Type: 
  Country: None (occurrence: None)
  Receive Date: 20080908
  Receipt Date: 20080826
  Transmission Date: 20090109
  Serious: Yes (Other)
  Sender: FDA-Public Use
  Company Number: LT-NOVOPROD-279076

PATIENT
  Sex: Male
  Weight: 1.57 kg

DRUGS (2)
  1. LEVEMIR [Suspect]
     Indication: DRUG USE FOR UNKNOWN INDICATION
     Dosage: 20 IU, QD
     Route: 064
     Dates: start: 20050501
  2. NOVORAPID PENFILL [Suspect]
     Dosage: 30 IU, QD
     Route: 064
     Dates: start: 20070501

REACTIONS (2)
  - PREMATURE BABY [None]
  - SMALL FOR DATES BABY [None]
